FAERS Safety Report 16233546 (Version 1)
Quarter: 2019Q2

REPORT INFORMATION
  Report Type: Spontaneous
  Country: AX (occurrence: AX)
  Receive Date: 20190423
  Receipt Date: 20190423
  Transmission Date: 20190711
  Serious: Yes (Hospitalization)
  Sender: FDA-Public Use
  Company Number: None

PATIENT
  Age: 74 Year
  Sex: Female
  Weight: 52 kg

DRUGS (1)
  1. HERCEPTIN [Suspect]
     Active Substance: TRASTUZUMAB
     Indication: BREAST CANCER
     Dosage: ?          OTHER FREQUENCY:WEEKLY;?
     Route: 042
     Dates: start: 20190419, end: 20190419

REACTIONS (5)
  - Somnolence [None]
  - Dysphagia [None]
  - Dry mouth [None]
  - Tremor [None]
  - Palpitations [None]

NARRATIVE: CASE EVENT DATE: 20190419
